FAERS Safety Report 7624067-2 (Version None)
Quarter: 2011Q3

REPORT INFORMATION
  Report Type: 
  Country: None (occurrence: None)
  Receive Date: 20110720
  Receipt Date: 20110707
  Transmission Date: 20111222
  Serious: Yes (Other)
  Sender: FDA-Public Use
  Company Number: PHHY2010CA66543

PATIENT
  Sex: Female

DRUGS (1)
  1. ZOLEDRONOC ACID [Suspect]
     Indication: OSTEOPOROSIS
     Dosage: UNK UKN, UNK
     Route: 042
     Dates: start: 20100930

REACTIONS (6)
  - BALANCE DISORDER [None]
  - DIZZINESS [None]
  - JOINT SWELLING [None]
  - OEDEMA PERIPHERAL [None]
  - HYPOAESTHESIA [None]
  - NASAL OEDEMA [None]
